FAERS Safety Report 6893255-5 (Version None)
Quarter: 2010Q3

REPORT INFORMATION
  Report Type: 
  Country: None (occurrence: None)
  Receive Date: 20100731
  Receipt Date: 20090723
  Transmission Date: 20110219
  Serious: No
  Sender: FDA-Public Use
  Company Number: US-PFIZER INC-2005092501

PATIENT
  Sex: Male
  Weight: 86.18 kg

DRUGS (16)
  1. NEURONTIN [Interacting]
     Indication: NEUROPATHY PERIPHERAL
     Dosage: 1800 TO 2400 MG
     Route: 048
     Dates: start: 20011226
  2. NEURONTIN [Interacting]
     Indication: CONVULSION
  3. NEURONTIN [Interacting]
     Indication: PARAESTHESIA
  4. LYRICA [Suspect]
     Indication: NEUROPATHY PERIPHERAL
     Route: 048
     Dates: start: 20040101, end: 20050501
  5. LYRICA [Suspect]
     Indication: CONVULSION
  6. LYRICA [Suspect]
     Indication: FIBROMYALGIA
  7. OXYCONTIN [Concomitant]
     Route: 048
     Dates: start: 20010621
  8. TRANXENE [Concomitant]
     Route: 048
  9. ATENOLOL [Concomitant]
     Route: 048
  10. BACLOFEN [Concomitant]
     Route: 048
     Dates: start: 20010613
  11. WELLBUTRIN [Concomitant]
     Route: 048
     Dates: start: 20010522
  12. PROTONIX [Concomitant]
     Route: 048
     Dates: start: 20010630
  13. AMBIEN [Concomitant]
     Route: 048
     Dates: start: 20010616
  14. TRAZODONE [Concomitant]
     Route: 048
     Dates: start: 20011225
  15. HYDROCODONE BITARTRATE [Concomitant]
     Route: 048
     Dates: start: 20011226
  16. NORTRIPTYLINE [Concomitant]
     Route: 065

REACTIONS (10)
  - CHEST PAIN [None]
  - CONFUSIONAL STATE [None]
  - DRUG INEFFECTIVE [None]
  - DRUG INTERACTION [None]
  - DRUG INTOLERANCE [None]
  - FEELING ABNORMAL [None]
  - HYPERHIDROSIS [None]
  - INSOMNIA [None]
  - PAIN [None]
  - VISION BLURRED [None]
